FAERS Safety Report 5363656-5 (Version None)
Quarter: 2007Q2

REPORT INFORMATION
  Report Type: 
  Country: None (occurrence: None)
  Receive Date: 20070618
  Receipt Date: 20070618
  Transmission Date: 20071010
  Serious: No
  Sender: FDA-Public Use
  Company Number: None

PATIENT
  Age: 40 Year
  Sex: Female
  Weight: 63.5036 kg

DRUGS (6)
  1. ZOMETA [Suspect]
     Indication: BREAST CANCER METASTATIC
     Dosage: 4 MG MONTHLY IV DRIP
     Route: 041
  2. ZOMETA [Suspect]
     Indication: METASTASES TO BONE
     Dosage: 4 MG MONTHLY IV DRIP
     Route: 041
  3. ZOMETA [Suspect]
     Indication: METASTASES TO LUNG
     Dosage: 4 MG MONTHLY IV DRIP
     Route: 041
  4. AVASTIN [Suspect]
     Indication: BREAST CANCER METASTATIC
     Dosage: 10 MG/KG TWICE PER MONTH IV DRIP
     Route: 041
  5. AVASTIN [Suspect]
     Indication: METASTASES TO BONE
     Dosage: 10 MG/KG TWICE PER MONTH IV DRIP
     Route: 041
  6. AVASTIN [Suspect]
     Indication: METASTASES TO LUNG
     Dosage: 10 MG/KG TWICE PER MONTH IV DRIP
     Route: 041

REACTIONS (3)
  - IMPAIRED WORK ABILITY [None]
  - OSTEONECROSIS [None]
  - UNEVALUABLE EVENT [None]
